FAERS Safety Report 21838366 (Version 1)
Quarter: 2023Q1

REPORT INFORMATION
  Report Type: Spontaneous
  Country: DE (occurrence: DE)
  Receive Date: 20230109
  Receipt Date: 20230109
  Transmission Date: 20230418
  Serious: Yes (Other)
  Sender: FDA-Public Use
  Company Number: DE-TEVA-2022-DE-2842538

PATIENT
  Age: 78 Year
  Sex: Male

DRUGS (6)
  1. ESCITALOPRAM [Suspect]
     Active Substance: ESCITALOPRAM OXALATE
     Indication: Fear
     Dosage: 5 MILLIGRAM DAILY; MORNING
     Dates: end: 2022
  2. ESCITALOPRAM [Suspect]
     Active Substance: ESCITALOPRAM OXALATE
     Indication: Foreign body ingestion
  3. AGOMELATINE [Concomitant]
     Active Substance: AGOMELATINE
     Indication: Foreign body ingestion
     Dosage: 25 MILLIGRAM DAILY; EVENING
  4. AGOMELATINE [Concomitant]
     Active Substance: AGOMELATINE
     Indication: Fear
  5. METOPROLOL [Concomitant]
     Active Substance: METOPROLOL
     Indication: Pulse abnormal
     Dosage: 47.5 MILLIGRAM DAILY;
  6. EDOXABAN TOSYLATE [Concomitant]
     Active Substance: EDOXABAN TOSYLATE
     Indication: Product used for unknown indication
     Dosage: 60 MILLIGRAM DAILY;

REACTIONS (2)
  - Arrhythmia [Unknown]
  - Irritability [Unknown]

NARRATIVE: CASE EVENT DATE: 20220101
